FAERS Safety Report 6827076-6 (Version None)
Quarter: 2010Q3

REPORT INFORMATION
  Report Type: 
  Country: None (occurrence: None)
  Receive Date: 20100709
  Receipt Date: 20100630
  Transmission Date: 20110219
  Serious: Yes (Other)
  Sender: FDA-Public Use
  Company Number: CA-JNJFOC-20100700676

PATIENT
  Sex: Male
  Weight: 105 kg

DRUGS (5)
  1. REMICADE [Suspect]
     Indication: CROHN'S DISEASE
     Dosage: TOTAL OF 9 DOSES
     Route: 042
  2. REMICADE [Suspect]
     Route: 042
  3. PAROXETINE HCL [Concomitant]
  4. METOPROLOL [Concomitant]
  5. NEXIUM [Concomitant]

REACTIONS (2)
  - HERNIA REPAIR [None]
  - WOUND COMPLICATION [None]
